FAERS Safety Report 7608439-8 (Version None)
Quarter: 2011Q3

REPORT INFORMATION
  Report Type: 
  Country: None (occurrence: None)
  Receive Date: 20110714
  Receipt Date: 20110630
  Transmission Date: 20111222
  Serious: Yes (Death)
  Sender: FDA-Public Use
  Company Number: IT-TEVA-289095ISR

PATIENT
  Sex: Male

DRUGS (7)
  1. OXALIPLATIN [Suspect]
     Indication: COLON CANCER STAGE IV
     Dosage: 120 MILLIGRAM;
     Route: 042
     Dates: start: 20110525, end: 20110608
  2. CALCIUM GLUCONATE [Concomitant]
     Dosage: 1000 MILLIGRAM;
     Route: 042
  3. DEXAMETHASONE [Concomitant]
     Dosage: 8 MILLIGRAM;
     Route: 042
  4. GRANISETRON [Concomitant]
     Dosage: 3 MILLIGRAM;
     Route: 042
  5. RANITIDINE [Concomitant]
     Dosage: 50 MILLIGRAM;
     Route: 042
  6. LEUCOVORIN CALCIUM [Suspect]
     Indication: COLON CANCER STAGE IV
     Dosage: 190 MILLIGRAM;
     Route: 042
     Dates: start: 20110525, end: 20110608
  7. MAGNESIUM SULFATE [Concomitant]
     Dosage: 1000 MILLIGRAM;
     Route: 042

REACTIONS (1)
  - CARDIAC ARREST [None]
